FAERS Safety Report 6673564-5 (Version None)
Quarter: 2010Q2

REPORT INFORMATION
  Report Type: 
  Country: None (occurrence: None)
  Receive Date: 20100408
  Receipt Date: 20100329
  Transmission Date: 20101027
  Serious: Yes (Other)
  Sender: FDA-Public Use
  Company Number: US-PFIZER INC-2009263024

PATIENT
  Sex: Female
  Weight: 72.562 kg

DRUGS (1)
  1. LYRICA [Suspect]
     Indication: NEURALGIA
     Dosage: 225 MG, 2X/DAY
     Route: 048
     Dates: start: 20070101

REACTIONS (3)
  - DYSPNOEA [None]
  - JOINT INJURY [None]
  - WITHDRAWAL SYNDROME [None]
